FAERS Safety Report 9143084 (Version 3)
Quarter: 2013Q2

REPORT INFORMATION
  Report Type: Spontaneous
  Country: US (occurrence: US)
  Receive Date: 20130306
  Receipt Date: 20130418
  Transmission Date: 20140414
  Serious: Yes (Other)
  Sender: FDA-Public Use
  Company Number: US-PFIZER INC-2013075356

PATIENT
  Sex: Female

DRUGS (8)
  1. TOVIAZ [Suspect]
     Indication: URGE INCONTINENCE
     Dosage: 8 MG, 1X/DAY
     Route: 048
     Dates: start: 20110429
  2. TOVIAZ [Suspect]
     Indication: STRESS URINARY INCONTINENCE
  3. CLOBETASOL PROPIONATE [Concomitant]
     Dosage: UNK
     Dates: start: 20120410
  4. LISINOPRIL [Concomitant]
     Dosage: 40 MG, UNK
     Route: 048
     Dates: start: 20111031
  5. METFORMIN HYDROCHLORIDE [Concomitant]
     Dosage: 500 MG, UNK
     Route: 048
  6. SYNTHROID [Concomitant]
     Dosage: 150 UG, UNK
     Route: 048
  7. TYLENOL [Concomitant]
     Dosage: UNK
  8. ZOCOR [Concomitant]
     Dosage: 80 MG, UNK
     Route: 048

REACTIONS (1)
  - Urinary tract infection [Unknown]
